FAERS Safety Report 12487160 (Version 1)
Quarter: 2016Q2

REPORT INFORMATION
  Report Type: Spontaneous
  Country: DE (occurrence: DE)
  Receive Date: 20160622
  Receipt Date: 20160622
  Transmission Date: 20160815
  Serious: Yes (Other)
  Sender: FDA-Public Use
  Company Number: DE-ROCHE-1778047

PATIENT
  Sex: Female

DRUGS (1)
  1. XOLAIR [Suspect]
     Active Substance: OMALIZUMAB
     Indication: ASTHMA
     Dosage: 300 MG, EVERY 6 WEEKS
     Route: 065
     Dates: start: 201211

REACTIONS (3)
  - Multiple sclerosis relapse [Unknown]
  - Inappropriate schedule of drug administration [Unknown]
  - Encephalitis [Unknown]

NARRATIVE: CASE EVENT DATE: 201211
